FAERS Safety Report 8255296-5 (Version None)
Quarter: 2012Q2

REPORT INFORMATION
  Report Type: 
  Country: None (occurrence: None)
  Receive Date: 20120403
  Receipt Date: 20120326
  Transmission Date: 20120825
  Serious: Yes (Hospitalization)
  Sender: FDA-Public Use
  Company Number: AT-BRISTOL-MYERS SQUIBB COMPANY-16476244

PATIENT
  Age: 14 Year
  Sex: Female

DRUGS (1)
  1. ABILIFY [Suspect]
     Dosage: 15TIMES
     Route: 048

REACTIONS (5)
  - AGITATION [None]
  - INTENTIONAL OVERDOSE [None]
  - CONFUSIONAL STATE [None]
  - DIZZINESS [None]
  - SINUS TACHYCARDIA [None]
